FAERS Safety Report 5225029-5 (Version None)
Quarter: 2007Q1

REPORT INFORMATION
  Report Type: 
  Country: None (occurrence: None)
  Receive Date: 20070131
  Receipt Date: 20070130
  Transmission Date: 20070707
  Serious: Yes (Other)
  Sender: FDA-Public Use
  Company Number: US-GLAXOSMITHKLINE-A0636189A

PATIENT
  Age: 37 Year
  Sex: Male

DRUGS (6)
  1. LAMICTAL [Suspect]
     Indication: BIPOLAR II DISORDER
     Dosage: 125MG AT NIGHT
     Route: 048
     Dates: start: 20061201, end: 20061211
  2. KLONOPIN [Concomitant]
     Dosage: .5MG AS REQUIRED
     Route: 048
  3. TRAZODONE HCL [Concomitant]
     Route: 048
  4. WELLBUTRIN XL [Concomitant]
     Dosage: 150MG IN THE MORNING
     Route: 048
  5. AMBIEN [Concomitant]
     Route: 048
  6. SYNTHROID [Concomitant]

REACTIONS (5)
  - COORDINATION ABNORMAL [None]
  - FEELING ABNORMAL [None]
  - GAIT DISTURBANCE [None]
  - HYPOREFLEXIA [None]
  - OVERDOSE [None]
